FAERS Safety Report 13257536 (Version 5)
Quarter: 2018Q3

REPORT INFORMATION
  Report Type: Report from Study
  Country: US (occurrence: US)
  Receive Date: 20170221
  Receipt Date: 20180713
  Transmission Date: 20181010
  Serious: Yes (Hospitalization, Other)
  Sender: FDA-Public Use
  Company Number: US-SA-2017SA026709

PATIENT
  Age: 21 Year
  Sex: Male

DRUGS (3)
  1. PLEGRIDY [Concomitant]
     Active Substance: PEGINTERFERON BETA-1A
     Dosage: UNK
     Dates: start: 20171007, end: 20180416
  2. TERIFLUNOMIDE [Suspect]
     Active Substance: TERIFLUNOMIDE
     Indication: MULTIPLE SCLEROSIS
     Dosage: 7 MG,QD
     Route: 048
     Dates: start: 20161216, end: 20170301
  3. AMPYRA [Concomitant]
     Active Substance: DALFAMPRIDINE
     Dosage: UNK
     Dates: start: 20180501

REACTIONS (13)
  - Condition aggravated [Unknown]
  - Gait disturbance [Unknown]
  - Balance disorder [Not Recovered/Not Resolved]
  - Hypotrichosis [Not Recovered/Not Resolved]
  - Depressed mood [Not Recovered/Not Resolved]
  - Mood swings [Not Recovered/Not Resolved]
  - Multiple sclerosis relapse [Unknown]
  - Memory impairment [Not Recovered/Not Resolved]
  - Dysarthria [Unknown]
  - Frustration tolerance decreased [Not Recovered/Not Resolved]
  - Alopecia [Not Recovered/Not Resolved]
  - Visual impairment [Not Recovered/Not Resolved]
  - Drug ineffective [Unknown]
